FAERS Safety Report 6658752-6 (Version None)
Quarter: 2010Q1

REPORT INFORMATION
  Report Type: 
  Country: None (occurrence: None)
  Receive Date: 20100330
  Receipt Date: 20100322
  Transmission Date: 20100710
  Serious: Yes (Hospitalization, Other)
  Sender: FDA-Public Use
  Company Number: PHEH2008US02322

PATIENT
  Sex: Female

DRUGS (11)
  1. ZOMETA [Suspect]
     Dosage: 4MG
     Route: 042
     Dates: start: 20050101
  2. ZOMETA [Suspect]
     Dosage: UNK, EVERY 3 MONTHS
     Dates: start: 20060101, end: 20060101
  3. TAMOXIFEN CITRATE [Concomitant]
  4. FASLODEX [Concomitant]
     Dosage: UNK
     Dates: start: 20050101
  5. AMOXICILLIN [Concomitant]
     Dosage: 250 MG, UNK
  6. MULTI-VITAMINS [Concomitant]
  7. VITAMIN C [Concomitant]
  8. ASPIRIN [Concomitant]
  9. TAXOL [Concomitant]
  10. ARIMIDEX [Concomitant]
  11. ZOLADEX [Concomitant]

REACTIONS (19)
  - BONE DISORDER [None]
  - DEBRIDEMENT [None]
  - DIVERTICULUM INTESTINAL [None]
  - GENERAL PHYSICAL CONDITION ABNORMAL [None]
  - HEPATIC STEATOSIS [None]
  - HIATUS HERNIA [None]
  - LYMPHADENOPATHY [None]
  - LYMPHOEDEMA [None]
  - MALIGNANT NEOPLASM PROGRESSION [None]
  - METASTASES TO BONE [None]
  - METASTASES TO SPINE [None]
  - OEDEMA PERIPHERAL [None]
  - OOPHORECTOMY [None]
  - ORAL SURGERY [None]
  - OSTEONECROSIS [None]
  - PAIN [None]
  - PAIN IN JAW [None]
  - SWELLING [None]
  - TOOTH EXTRACTION [None]
